FAERS Safety Report 21223984 (Version 1)
Quarter: 2022Q3

REPORT INFORMATION
  Report Type: Spontaneous
  Country: US (occurrence: None)
  Receive Date: 20220817
  Receipt Date: 20220817
  Transmission Date: 20221026
  Serious: No
  Sender: FDA-Public Use
  Company Number: None

PATIENT
  Sex: 0

DRUGS (1)
  1. VITAMIN A [Suspect]
     Active Substance: VITAMIN A

REACTIONS (2)
  - Incorrect dose administered [None]
  - Product label confusion [None]
